FAERS Safety Report 21698968 (Version 1)
Quarter: 2022Q4

REPORT INFORMATION
  Report Type: Spontaneous
  Country: US (occurrence: None)
  Receive Date: 20221207
  Receipt Date: 20221207
  Transmission Date: 20230113
  Serious: Yes (Hospitalization)
  Sender: FDA-Public Use
  Company Number: None

PATIENT
  Age: 66 Year
  Sex: Male
  Weight: 111 kg

DRUGS (1)
  1. OXYBUTYNIN CHLORIDE [Suspect]
     Active Substance: OXYBUTYNIN CHLORIDE
     Indication: Hypertonic bladder
     Dosage: 5 MG EVERY DAY PO?
     Route: 048
     Dates: start: 20221025, end: 20221125

REACTIONS (3)
  - Orthostatic hypotension [None]
  - Fall [None]
  - Muscular weakness [None]

NARRATIVE: CASE EVENT DATE: 20221125
